FAERS Safety Report 5585860-3 (Version None)
Quarter: 2008Q1

REPORT INFORMATION
  Report Type: 
  Country: None (occurrence: None)
  Receive Date: 20080109
  Receipt Date: 20080102
  Transmission Date: 20080703
  Serious: Yes (Death, Hospitalization)
  Sender: FDA-Public Use
  Company Number: GR-ABBOTT-07P-066-0425804-00

PATIENT
  Age: 77 Year
  Sex: Male
  Weight: 75 kg

DRUGS (5)
  1. ZEMPLAR [Suspect]
     Indication: HYPERPARATHYROIDISM SECONDARY
     Route: 042
     Dates: start: 20070403, end: 20071201
  2. EPOETIN ALFA [Concomitant]
     Indication: ANAEMIA
     Route: 042
     Dates: start: 20030601, end: 20071201
  3. NEUROBION [Concomitant]
     Indication: HYPOVITAMINOSIS
     Route: 042
     Dates: start: 20030601, end: 20071201
  4. IRON DEXTRAN [Concomitant]
     Indication: IRON DEFICIENCY
     Route: 042
     Dates: start: 20030601, end: 20071201
  5. AMINAMEL [Concomitant]
     Indication: HYPOALBUMINAEMIA
     Route: 042
     Dates: start: 20030601, end: 20071201

REACTIONS (1)
  - CEREBROVASCULAR ACCIDENT [None]
